FAERS Safety Report 8313511-3 (Version None)
Quarter: 2012Q2

REPORT INFORMATION
  Report Type: 
  Country: None (occurrence: None)
  Receive Date: 20120426
  Receipt Date: 20120417
  Transmission Date: 20120825
  Serious: Yes (Other)
  Sender: FDA-Public Use
  Company Number: AT-JNJFOC-20120410793

PATIENT
  Sex: Female

DRUGS (2)
  1. SEVISTA [Concomitant]
     Indication: OSTEOPOROSIS
  2. XARELTO [Suspect]
     Indication: KNEE OPERATION
     Route: 048

REACTIONS (1)
  - THROMBOSIS [None]
